FAERS Safety Report 8346714-2 (Version None)
Quarter: 2012Q2

REPORT INFORMATION
  Report Type: 
  Country: None (occurrence: None)
  Receive Date: 20120509
  Receipt Date: 20120502
  Transmission Date: 20120825
  Serious: Yes (Other)
  Sender: FDA-Public Use
  Company Number: US-UCBSA-8045753

PATIENT
  Sex: Female

DRUGS (3)
  1. KEPPRA [Suspect]
     Route: 048
     Dates: start: 20071101
  2. PRENATAL VITAMIN WITH FOLIC ACID [Concomitant]
     Indication: PREGNANCY
     Dosage: DOSE FREQ.: DAILY
     Route: 048
  3. PRENATAL VITAMIN WITH FOLIC ACID [Concomitant]
     Dosage: DOSE FREQ.: DAILY
     Route: 048

REACTIONS (2)
  - PLACENTAL DISORDER [None]
  - PREGNANCY [None]
